FAERS Safety Report 12991893 (Version 3)
Quarter: 2016Q4

REPORT INFORMATION
  Report Type: Report from Study
  Country: CA (occurrence: CA)
  Receive Date: 20161201
  Receipt Date: 20161221
  Transmission Date: 20170207
  Serious: Yes (Hospitalization)
  Sender: FDA-Public Use
  Company Number: CA-B.I. PHARMACEUTICALS,INC./RIDGEFIELD-2016-BI-067376

PATIENT
  Age: 31 Year
  Sex: Male
  Weight: 73 kg

DRUGS (9)
  1. GRAVOL [Concomitant]
     Active Substance: DIMENHYDRINATE
     Indication: NAUSEA
     Dosage: DAILY DOSAGE: 25-50MG Q6H PRN
     Route: 048
     Dates: start: 20161010
  2. HYDROMORPHONE [Concomitant]
     Active Substance: HYDROMORPHONE
     Indication: PAIN
     Route: 048
     Dates: start: 20161010
  3. TYLENOL WITH CODEINE [Concomitant]
     Active Substance: ACETAMINOPHEN\CODEINE PHOSPHATE
     Indication: PAIN
     Dosage: DAILY DOSE: 1 TAB Q4H PRN PO
     Route: 048
     Dates: start: 20161010
  4. PLACEBO [Suspect]
     Active Substance: UNSPECIFIED INGREDIENT
     Indication: TYPE 1 DIABETES MELLITUS
     Route: 048
  5. LANTUS [Concomitant]
     Active Substance: INSULIN GLARGINE
     Indication: DIABETES MELLITUS
     Dosage: DAILY DOSAGE: 15U SC QHS
     Route: 058
  6. ZOLOFT [Concomitant]
     Active Substance: SERTRALINE HYDROCHLORIDE
     Indication: DEPRESSION
     Route: 048
     Dates: start: 201606
  7. LISPRO [Concomitant]
     Active Substance: INSULIN LISPRO
     Indication: DIABETES MELLITUS
     Route: 058
  8. RAMIPRIL. [Suspect]
     Active Substance: RAMIPRIL
     Indication: TYPE 1 DIABETES MELLITUS
     Route: 048
     Dates: start: 20160817
  9. SENNOSIDES. [Concomitant]
     Active Substance: SENNOSIDES
     Indication: FAECES SOFT
     Dosage: DAILY DOSAGE: 2 TABS PO HS
     Route: 048
     Dates: start: 20161010

REACTIONS (1)
  - Intestinal obstruction [Recovered/Resolved]

NARRATIVE: CASE EVENT DATE: 20161006
